FAERS Safety Report 7955543-0 (Version None)
Quarter: 2011Q4

REPORT INFORMATION
  Report Type: 
  Country: None (occurrence: None)
  Receive Date: 20111202
  Receipt Date: 20111128
  Transmission Date: 20120403
  Serious: Yes (Other)
  Sender: FDA-Public Use
  Company Number: US-AMGEN-USASP2011054680

PATIENT
  Age: 58 Year
  Sex: Female

DRUGS (10)
  1. POTASSIUM CHLORIDE [Concomitant]
  2. MINERAL TAB [Concomitant]
  3. SODIUM CHLORIDE [Concomitant]
     Dosage: 1 G, QD
  4. PROLIA [Suspect]
     Indication: OSTEOPOROSIS POSTMENOPAUSAL
     Dosage: 60 MG, Q6MO
     Dates: start: 20110708, end: 20110714
  5. VITAMIN D [Concomitant]
  6. POTASSIUM CHLORIDE [Concomitant]
     Dosage: 1 MEQ, QD
  7. FIORICET [Concomitant]
  8. HYDROCODONE [Concomitant]
  9. SODIUM CHLORIDE [Concomitant]
  10. MULTIVITAMIN                       /00097801/ [Concomitant]

REACTIONS (15)
  - CHEST PAIN [None]
  - WEIGHT INCREASED [None]
  - HYPONATRAEMIA [None]
  - BLOOD PRESSURE INCREASED [None]
  - SPINAL COMPRESSION FRACTURE [None]
  - BLOOD CREATININE DECREASED [None]
  - TACHYCARDIA [None]
  - SERUM FERRITIN DECREASED [None]
  - PAIN IN JAW [None]
  - ABDOMINAL DISTENSION [None]
  - BONE FORMATION DECREASED [None]
  - PATHOLOGICAL FRACTURE [None]
  - RENAL DISORDER [None]
  - DENTAL CARIES [None]
  - BLOOD UREA DECREASED [None]
